FAERS Safety Report 13742361 (Version 1)
Quarter: 2017Q3

REPORT INFORMATION
  Report Type: Spontaneous
  Country: RU (occurrence: RU)
  Receive Date: 20170711
  Receipt Date: 20170711
  Transmission Date: 20171127
  Serious: Yes (Hospitalization, Other)
  Sender: FDA-Public Use
  Company Number: RU-ASTRAZENECA-2017SE69108

PATIENT
  Age: 45 Year
  Sex: Male
  Weight: 98 kg

DRUGS (5)
  1. CONCOR COR [Concomitant]
     Active Substance: BISOPROLOL FUMARATE
  2. ATORIS [Concomitant]
     Active Substance: ATORVASTATIN CALCIUM
  3. ASPIRIN CARDIO [Concomitant]
     Active Substance: ASPIRIN
  4. RENITEC [Concomitant]
     Active Substance: ENALAPRIL MALEATE
  5. BRILINTA [Suspect]
     Active Substance: TICAGRELOR
     Indication: MYOCARDIAL INFARCTION
     Route: 048
     Dates: start: 201610

REACTIONS (1)
  - Cerebrovascular accident [Unknown]

NARRATIVE: CASE EVENT DATE: 20170626
